FAERS Safety Report 21093076 (Version 11)
Quarter: 2022Q4

REPORT INFORMATION
  Report Type: Report from Study
  Country: US (occurrence: US)
  Receive Date: 20220718
  Receipt Date: 20221111
  Transmission Date: 20230112
  Serious: Yes (Hospitalization)
  Sender: FDA-Public Use
  Company Number: NVSC2022US161776

PATIENT
  Age: 23 Year
  Sex: Female
  Weight: 73.48 kg

DRUGS (9)
  1. TREPROSTINIL [Suspect]
     Active Substance: TREPROSTINIL
     Indication: Pulmonary arterial hypertension
     Dosage: 2 NG/KG/MIN, CONT
     Route: 058
     Dates: start: 20220705
  2. TREPROSTINIL [Suspect]
     Active Substance: TREPROSTINIL
     Dosage: 4 NG/KG/MIN, CONT
     Route: 058
  3. TREPROSTINIL [Suspect]
     Active Substance: TREPROSTINIL
     Dosage: 8 NG/KG/MIN, CONT
     Route: 058
  4. TYVASO [Suspect]
     Active Substance: TREPROSTINIL
     Indication: Product used for unknown indication
     Dosage: UNK
     Route: 065
  5. TYVASO [Suspect]
     Active Substance: TREPROSTINIL
     Dosage: 16 UG, QID
  6. TYVASO [Suspect]
     Active Substance: TREPROSTINIL
     Dosage: DOSE INCREASED
     Route: 065
  7. SILDENAFIL CITRATE [Concomitant]
     Active Substance: SILDENAFIL CITRATE
     Indication: Product used for unknown indication
     Dosage: UNK
     Route: 065
  8. DILTIAZEM [Concomitant]
     Active Substance: DILTIAZEM
     Indication: Product used for unknown indication
     Dosage: UNK
     Route: 065
  9. SYMBICORT [Concomitant]
     Active Substance: BUDESONIDE\FORMOTEROL FUMARATE DIHYDRATE
     Indication: Product used for unknown indication
     Dosage: UNK
     Route: 065

REACTIONS (20)
  - Haemoptysis [Unknown]
  - Peripheral swelling [Unknown]
  - Pain [Unknown]
  - Productive cough [Unknown]
  - Epistaxis [Unknown]
  - Hypopnoea [Recovered/Resolved]
  - Hypopnoea [Unknown]
  - Bronchospasm [Unknown]
  - Neck pain [Unknown]
  - Chest pain [Unknown]
  - Sensation of foreign body [Unknown]
  - Hypopnoea [Recovered/Resolved]
  - Chest discomfort [Unknown]
  - Diarrhoea [Unknown]
  - Dyspnoea [Not Recovered/Not Resolved]
  - Headache [Unknown]
  - Nausea [Unknown]
  - Fatigue [Unknown]
  - Pain in jaw [Unknown]
  - Injection site pain [Unknown]

NARRATIVE: CASE EVENT DATE: 20221001
